FAERS Safety Report 25289328 (Version 2)
Quarter: 2025Q3

REPORT INFORMATION
  Report Type: Report from Study
  Country: CN (occurrence: CN)
  Receive Date: 20250509
  Receipt Date: 20250708
  Transmission Date: 20251021
  Serious: Yes (Hospitalization)
  Sender: REGENERON
  Company Number: CN-SA-SAC20240516000507

PATIENT
  Age: 77 Year
  Sex: Male

DRUGS (2)
  1. PRALUENT [Suspect]
     Active Substance: ALIROCUMAB
     Indication: Acute coronary syndrome
     Dosage: 75 MG, QOW,  SOLUTION FOR INJECTION
     Route: 058
     Dates: start: 20231110, end: 20231110
  2. PRALUENT [Suspect]
     Active Substance: ALIROCUMAB
     Dosage: 75 MG, QOW,  SOLUTION FOR INJECTION
     Route: 058
     Dates: start: 20231121

REACTIONS (2)
  - Cardiac failure [Recovering/Resolving]
  - Cardiac failure [Recovering/Resolving]

NARRATIVE: CASE EVENT DATE: 20231111
